FAERS Safety Report 21109757 (Version 5)
Quarter: 2023Q1

REPORT INFORMATION
  Report Type: Report from Study
  Country: US (occurrence: US)
  Receive Date: 20220721
  Receipt Date: 20230223
  Transmission Date: 20230418
  Serious: Yes (Other)
  Sender: FDA-Public Use
  Company Number: US-NOVARTISTESTPH-NVSC2022US164767

PATIENT
  Sex: Male

DRUGS (3)
  1. COSENTYX [Suspect]
     Active Substance: SECUKINUMAB
     Indication: Psoriasis
     Dosage: 300 MG, QW
     Route: 058
  2. COSENTYX [Suspect]
     Active Substance: SECUKINUMAB
     Indication: Psoriatic arthropathy
     Dosage: 300 MG, QMO
     Route: 058
  3. COSENTYX [Suspect]
     Active Substance: SECUKINUMAB
     Dosage: UNK (3RD DOSE)
     Route: 065

REACTIONS (8)
  - Psoriatic arthropathy [Unknown]
  - Pain in extremity [Unknown]
  - Seasonal allergy [Unknown]
  - Lower respiratory tract infection [Unknown]
  - Anal incontinence [Unknown]
  - Nasopharyngitis [Unknown]
  - Sinusitis [Unknown]
  - Drug ineffective [Unknown]
